FAERS Safety Report 9364806 (Version 1)
Quarter: 2013Q2

REPORT INFORMATION
  Report Type: Spontaneous
  Country: US (occurrence: US)
  Receive Date: 20130624
  Receipt Date: 20130624
  Transmission Date: 20140414
  Serious: Yes (Hospitalization)
  Sender: FDA-Public Use
  Company Number: US-ELI_LILLY_AND_COMPANY-US201306005008

PATIENT
  Age: 77 Year
  Sex: Male
  Weight: 86.17 kg

DRUGS (1)
  1. HUMALOG LISPRO [Suspect]
     Dosage: UNK
     Route: 058

REACTIONS (3)
  - Pneumonia [Unknown]
  - Blood glucose increased [Not Recovered/Not Resolved]
  - Thirst [Unknown]
